FAERS Safety Report 4972822-X (Version None)
Quarter: 2006Q2

REPORT INFORMATION
  Report Type: 
  Country: None (occurrence: None)
  Receive Date: 20060414
  Receipt Date: 20060404
  Transmission Date: 20061013
  Serious: Yes (Hospitalization)
  Sender: FDA-Public Use
  Company Number: FR-JNJFOC-20060402566

PATIENT
  Age: 28 Year
  Sex: Female

DRUGS (26)
  1. TOPALGIC [Suspect]
     Indication: ABDOMINAL PAIN
     Route: 048
  2. DAFALGAN [Suspect]
     Indication: ABDOMINAL PAIN
     Route: 048
  3. SUPRANE [Suspect]
     Indication: DRUG USE FOR UNKNOWN INDICATION
     Route: 048
  4. ZOPHREN [Suspect]
     Indication: ABDOMINAL PAIN
     Route: 048
  5. PERFALGAN [Suspect]
     Indication: ABDOMINAL PAIN
     Dosage: 1-2 DAYS DURATION
     Route: 042
  6. SEVOFLURANE [Suspect]
     Indication: DRUG USE FOR UNKNOWN INDICATION
     Route: 055
  7. SUXAMETHONIUM IODIDE [Suspect]
     Indication: DRUG USE FOR UNKNOWN INDICATION
     Route: 042
  8. SUFENTA [Suspect]
     Indication: DRUG USE FOR UNKNOWN INDICATION
     Route: 048
  9. MIDAZOLAM HYDROCHLORIDE [Suspect]
     Indication: DRUG USE FOR UNKNOWN INDICATION
     Route: 065
  10. TRACRIUM [Suspect]
     Indication: DRUG USE FOR UNKNOWN INDICATION
     Route: 042
  11. AMIKACIN [Suspect]
     Indication: DRUG USE FOR UNKNOWN INDICATION
     Route: 030
  12. EPHEDRINE SUL CAP [Suspect]
     Indication: DRUG USE FOR UNKNOWN INDICATION
     Route: 042
  13. ATROPINE [Suspect]
     Indication: DRUG USE FOR UNKNOWN INDICATION
     Route: 065
  14. NEOSTIGMINE [Suspect]
     Indication: DRUG USE FOR UNKNOWN INDICATION
     Route: 065
  15. MORPHINE [Suspect]
     Indication: DRUG USE FOR UNKNOWN INDICATION
     Route: 065
  16. PROPOFOL [Suspect]
     Indication: DRUG USE FOR UNKNOWN INDICATION
     Route: 065
  17. LOVENOX [Concomitant]
     Route: 065
  18. PRIMPERAN TAB [Concomitant]
     Route: 065
  19. SPASFON [Concomitant]
     Route: 065
  20. SPASFON [Concomitant]
     Route: 065
  21. KLEAN PREP [Concomitant]
     Route: 065
  22. KLEAN PREP [Concomitant]
     Route: 065
  23. KLEAN PREP [Concomitant]
     Route: 065
  24. KLEAN PREP [Concomitant]
     Route: 065
  25. KLEAN PREP [Concomitant]
     Route: 065
  26. ATARAX [Concomitant]
     Route: 065

REACTIONS (1)
  - HEPATITIS FULMINANT [None]
